FAERS Safety Report 24957867 (Version 1)
Quarter: 2025Q1

REPORT INFORMATION
  Report Type: Spontaneous
  Country: JP (occurrence: JP)
  Receive Date: 20250212
  Receipt Date: 20250212
  Transmission Date: 20250409
  Serious: Yes (Other)
  Sender: ASTELLAS
  Company Number: JP-ASTELLAS-2025-AER-008518

PATIENT
  Sex: Male

DRUGS (1)
  1. CRESEMBA [Suspect]
     Active Substance: ISAVUCONAZONIUM SULFATE
     Indication: Mucormycosis
     Route: 050
     Dates: start: 202412

REACTIONS (1)
  - Systemic candida [Unknown]

NARRATIVE: CASE EVENT DATE: 20250101
